FAERS Safety Report 8504040-2 (Version None)
Quarter: 2012Q3

REPORT INFORMATION
  Report Type: 
  Country: None (occurrence: None)
  Receive Date: 20120711
  Receipt Date: 20120704
  Transmission Date: 20120928
  Serious: Yes (Hospitalization)
  Sender: FDA-Public Use
  Company Number: CH-ELI_LILLY_AND_COMPANY-CH201207001977

PATIENT
  Sex: Female
  Weight: 90 kg

DRUGS (4)
  1. EFFIENT [Suspect]
     Dosage: 10 MG, QD
     Dates: start: 20110222
  2. EFFIENT [Suspect]
     Indication: ANGINA PECTORIS
     Dosage: 60 MG, QD
     Dates: start: 20110221, end: 20110221
  3. ASPIRIN [Concomitant]
     Dosage: 100 MG, QD
  4. ASPIRIN [Concomitant]
     Dosage: UNK, OTHER

REACTIONS (3)
  - MYOCARDIAL ISCHAEMIA [None]
  - CORONARY ARTERY RESTENOSIS [None]
  - ANGINA PECTORIS [None]
